FAERS Safety Report 12397580 (Version 1)
Quarter: 2016Q2

REPORT INFORMATION
  Report Type: Spontaneous
  Country: None (occurrence: None)
  Receive Date: 20160523
  Receipt Date: 20160523
  Transmission Date: 20160815
  Serious: Yes (Disabling)
  Sender: FDA-Public Use
  Company Number: None

PATIENT
  Age: 29 Year
  Sex: Female
  Weight: 64 kg

DRUGS (1)
  1. CONAZOL [Suspect]
     Active Substance: MICONAZOLE NITRATE
     Indication: DANDRUFF

REACTIONS (9)
  - Chromaturia [None]
  - Blood bilirubin increased [None]
  - Hirsutism [None]
  - Alopecia [None]
  - Skin hyperpigmentation [None]
  - Abdominal pain upper [None]
  - Blood alkaline phosphatase decreased [None]
  - Fatigue [None]
  - Arthralgia [None]

NARRATIVE: CASE EVENT DATE: 20140430
